FAERS Safety Report 14670608 (Version 1)
Quarter: 2018Q1

REPORT INFORMATION
  Report Type: Spontaneous
  Country: CA (occurrence: CA)
  Receive Date: 20180322
  Receipt Date: 20180322
  Transmission Date: 20180509
  Serious: Yes (Disabling)
  Sender: FDA-Public Use
  Company Number: CA-BAYER-2018-051754

PATIENT
  Age: 43 Year
  Sex: Female
  Weight: 47.17 kg

DRUGS (3)
  1. MIRENA [Suspect]
     Active Substance: LEVONORGESTREL
     Indication: CONTRACEPTION
     Dosage: 20 MCG/24HR, CONT
     Route: 015
  2. MIRENA [Suspect]
     Active Substance: LEVONORGESTREL
  3. SYNTHROID [Concomitant]
     Active Substance: LEVOTHYROXINE SODIUM
     Route: 048

REACTIONS (10)
  - Adnexa uteri pain [Unknown]
  - Nausea [Unknown]
  - Tachycardia [Unknown]
  - Depression [Unknown]
  - Mood swings [Unknown]
  - Abdominal pain [Unknown]
  - Headache [Unknown]
  - Fatigue [Unknown]
  - Night sweats [Unknown]
  - Dizziness [Unknown]
